FAERS Safety Report 15509068 (Version 1)
Quarter: 2018Q4

REPORT INFORMATION
  Report Type: Spontaneous
  Country: US (occurrence: US)
  Receive Date: 20181016
  Receipt Date: 20181016
  Transmission Date: 20190205
  Serious: Yes (Other)
  Sender: FDA-Public Use
  Company Number: None

PATIENT
  Age: 31 Year
  Sex: Female
  Weight: 72.45 kg

DRUGS (1)
  1. COMPLETE CARE TARTAR CONTROL PLUS WHITENING BAKING SODA AND PEROXIDE [Suspect]
     Active Substance: SODIUM FLUORIDE
     Indication: DENTAL CARE
     Dates: start: 20181013, end: 20181014

REACTIONS (4)
  - Oral mucosal eruption [None]
  - Speech disorder [None]
  - Tongue blistering [None]
  - Feeding disorder [None]

NARRATIVE: CASE EVENT DATE: 20181014
